FAERS Safety Report 8369763-7 (Version None)
Quarter: 2012Q2

REPORT INFORMATION
  Report Type: 
  Country: None (occurrence: None)
  Receive Date: 20120518
  Receipt Date: 20120509
  Transmission Date: 20120825
  Serious: Yes (Hospitalization)
  Sender: FDA-Public Use
  Company Number: US-PFIZER INC-2012114895

PATIENT
  Sex: Male
  Weight: 67.4 kg

DRUGS (15)
  1. FLUOROURACIL [Suspect]
     Indication: HEAD AND NECK CANCER
     Dosage: 910 MG, DAY FOR 4DAYS Q 3 WEEKS
     Route: 042
     Dates: start: 20120130, end: 20120420
  2. MAGNESIUM OXIDE [Concomitant]
     Indication: HYPOMAGNESAEMIA
     Dosage: UNK
     Dates: start: 20120130
  3. CISPLATIN [Suspect]
     Indication: HEAD AND NECK CANCER
     Dosage: 91 MG, EVERY 3 WEEKS
     Route: 042
     Dates: start: 20120130, end: 20120416
  4. ERBITUX [Suspect]
     Indication: HEAD AND NECK CANCER
     Dosage: 455 MG, WEEKLY
     Route: 042
     Dates: start: 20120109, end: 20120416
  5. LORAZEPAM [Concomitant]
     Indication: NAUSEA
     Dosage: UNK
     Dates: start: 20120202
  6. LORAZEPAM [Concomitant]
     Indication: VOMITING
  7. METFORMIN [Concomitant]
     Indication: DIABETES MELLITUS
     Dosage: UNK
  8. TRAZODONE [Concomitant]
     Indication: DEPRESSION
     Dosage: UNK
     Dates: start: 20111026
  9. DEXAMETHASONE [Concomitant]
     Indication: NAUSEA
     Dosage: UNK
     Dates: start: 20120130
  10. MINOCYCLINE HYDROCHLORIDE [Concomitant]
     Indication: RASH
     Dosage: UNK
     Dates: start: 20120117
  11. PENTOXIFYLLINE [Concomitant]
     Indication: CARDIOVASCULAR INSUFFICIENCY
     Dosage: UNK
     Dates: start: 20120109
  12. TRAZODONE [Concomitant]
     Indication: INSOMNIA
  13. ROSUVASTATIN [Concomitant]
     Indication: BLOOD CHOLESTEROL ABNORMAL
     Dosage: UNK
     Dates: start: 20071226
  14. METOPROLOL TARTRATE AND HYDROCHLOROTHIAZIDE [Concomitant]
     Indication: BLOOD PRESSURE ABNORMAL
     Dosage: UNK
     Dates: start: 20071226
  15. ONDANSETRON [Concomitant]
     Indication: NAUSEA
     Dosage: UNK
     Dates: start: 20120130

REACTIONS (3)
  - SYNCOPE [None]
  - FALL [None]
  - DYSPHAGIA [None]
